FAERS Safety Report 4629318-4 (Version None)
Quarter: 2005Q2

REPORT INFORMATION
  Report Type: 
  Country: None (occurrence: None)
  Receive Date: 20050405
  Receipt Date: 20050401
  Transmission Date: 20051028
  Serious: Yes (Life-Threatening, Other)
  Sender: FDA-Public Use
  Company Number: 2005-BP-02830RO

PATIENT
  Age: 63 Year
  Sex: Male

DRUGS (3)
  1. LEUCOVORIN CALCIUM TALBETS USP, 10MG (CALCIUM FOLINATE) [Suspect]
     Indication: RECTAL CANCER
     Dosage: 75 MG/DAY/CYCLE (NR), PO
     Route: 048
     Dates: start: 20041116, end: 20050110
  2. UFT [Suspect]
     Indication: RECTAL CANCER
     Dosage: 5 CAPSULES/DAY/CYCLE (NR), PO
     Route: 048
     Dates: start: 20041116, end: 20050110
  3. UFT [Suspect]
     Indication: RECTAL CANCER
     Dosage: 3 CAPSULES/DAY/CUCLE (NR), PO
     Route: 048
     Dates: start: 20050101

REACTIONS (12)
  - ACUTE MYOCARDIAL INFARCTION [None]
  - ALANINE AMINOTRANSFERASE INCREASED [None]
  - ANOREXIA [None]
  - ASPARTATE AMINOTRANSFERASE INCREASED [None]
  - BLOOD CREATINE PHOSPHOKINASE INCREASED [None]
  - BLOOD LACTATE DEHYDROGENASE INCREASED [None]
  - DEHYDRATION [None]
  - DIARRHOEA [None]
  - HAEMOGLOBIN ABNORMAL [None]
  - HAEMORRHAGE [None]
  - LYMPHOCYTE COUNT DECREASED [None]
  - LYMPHOCYTE COUNT INCREASED [None]
